FAERS Safety Report 15916409 (Version 1)
Quarter: 2019Q1

REPORT INFORMATION
  Report Type: Spontaneous
  Country: US (occurrence: US)
  Receive Date: 20190114
  Receipt Date: 20190114
  Transmission Date: 20190417
  Serious: No
  Sender: FDA-Public Use
  Company Number: None

PATIENT
  Age: 60 Year
  Sex: Female

DRUGS (2)
  1. PENNEEDLE [Concomitant]
  2. TYMLOS [Suspect]
     Active Substance: ABALOPARATIDE
     Dates: start: 201712

REACTIONS (3)
  - Heart rate increased [None]
  - Headache [None]
  - Chest discomfort [None]

NARRATIVE: CASE EVENT DATE: 20190114
